FAERS Safety Report 24954288 (Version 1)
Quarter: 2025Q1

REPORT INFORMATION
  Report Type: Spontaneous
  Country: JP (occurrence: JP)
  Receive Date: 20250211
  Receipt Date: 20250211
  Transmission Date: 20250408
  Serious: Yes (Hospitalization)
  Sender: ROCHE
  Company Number: JP-CHUGAI-2025003762

PATIENT
  Age: 6 Decade
  Sex: Female

DRUGS (2)
  1. ENSPRYNG [Suspect]
     Active Substance: SATRALIZUMAB-MWGE
     Indication: Neuromyelitis optica spectrum disorder
     Route: 050
     Dates: end: 2024
  2. ENSPRYNG [Suspect]
     Active Substance: SATRALIZUMAB-MWGE
     Route: 058
     Dates: start: 20241224

REACTIONS (2)
  - Cardiac failure [Recovered/Resolved]
  - Treatment noncompliance [Unknown]
